FAERS Safety Report 10024439 (Version 2)
Quarter: 2014Q1

REPORT INFORMATION
  Report Type: Spontaneous
  Country: US (occurrence: US)
  Receive Date: 20140320
  Receipt Date: 20140320
  Transmission Date: 20141002
  Serious: No
  Sender: FDA-Public Use
  Company Number: US-ENDO PHARMACEUTICALS INC.-OPCR20140002

PATIENT
  Age: 37 Year
  Sex: Female

DRUGS (3)
  1. OPANA ER 20MG [Suspect]
     Indication: PAIN
     Route: 048
     Dates: end: 20131231
  2. OPANA ER 20MG [Suspect]
     Route: 048
     Dates: start: 201401
  3. FENTANYL [Concomitant]
     Indication: PAIN
     Dosage: 50 MCG/HOUR
     Route: 062
     Dates: start: 201311

REACTIONS (3)
  - Dyspnoea [Unknown]
  - Hot flush [Unknown]
  - Drug ineffective [Unknown]
